FAERS Safety Report 20165077 (Version 7)
Quarter: 2023Q4

REPORT INFORMATION
  Report Type: Report from Study
  Country: US (occurrence: US)
  Receive Date: 20211209
  Receipt Date: 20231220
  Transmission Date: 20240109
  Serious: Yes (Hospitalization, Other)
  Sender: FDA-Public Use
  Company Number: US-TAKEDA-US202026184

PATIENT
  Sex: Female

DRUGS (2)
  1. HUMAN IMMUNOGLOBULIN G [Suspect]
     Active Substance: HUMAN IMMUNOGLOBULIN G
     Indication: Primary immunodeficiency syndrome
     Dosage: UNK
     Route: 042
  2. HUMAN IMMUNOGLOBULIN G [Suspect]
     Active Substance: HUMAN IMMUNOGLOBULIN G
     Indication: Hypogammaglobulinaemia

REACTIONS (24)
  - Deafness unilateral [Unknown]
  - Staphylococcal infection [Unknown]
  - Pneumonia [Unknown]
  - Sepsis [Unknown]
  - Skin laceration [Unknown]
  - Contusion [Unknown]
  - Asthenia [Unknown]
  - Arthralgia [Unknown]
  - Malaise [Unknown]
  - Influenza like illness [Unknown]
  - Fall [Unknown]
  - Road traffic accident [Unknown]
  - Ligament sprain [Unknown]
  - Joint injury [Unknown]
  - Post-traumatic neck syndrome [Unknown]
  - Vitamin B12 decreased [Unknown]
  - Ear infection [Unknown]
  - COVID-19 [Unknown]
  - Poor venous access [Unknown]
  - Insurance issue [Unknown]
  - Influenza [Unknown]
  - Infusion site bruising [Unknown]
  - Fatigue [Unknown]
  - Incorrect product administration duration [Unknown]
